FAERS Safety Report 25683959 (Version 1)
Quarter: 2025Q3

REPORT INFORMATION
  Report Type: Spontaneous
  Country: US (occurrence: US)
  Receive Date: 20250815
  Receipt Date: 20250815
  Transmission Date: 20251021
  Serious: Yes (Other)
  Sender: AMGEN
  Company Number: US-AMGEN-USASP2025159900

PATIENT

DRUGS (3)
  1. PREDNISONE [Suspect]
     Active Substance: PREDNISONE
     Indication: Product used for unknown indication
     Route: 065
  2. BELATACEPT [Concomitant]
     Active Substance: BELATACEPT
  3. MYCOPHENOLATE MOFETIL [Concomitant]
     Active Substance: MYCOPHENOLATE MOFETIL

REACTIONS (5)
  - Kidney transplant rejection [Unknown]
  - Polyomavirus viraemia [Unknown]
  - Cytomegalovirus viraemia [Unknown]
  - Transplant rejection [Unknown]
  - Donor specific antibody present [Unknown]
